FAERS Safety Report 6667977-5 (Version None)
Quarter: 2010Q2

REPORT INFORMATION
  Report Type: 
  Country: None (occurrence: None)
  Receive Date: 20100401
  Receipt Date: 20100322
  Transmission Date: 20101027
  Serious: Yes (Hospitalization)
  Sender: FDA-Public Use
  Company Number: B0546095A

PATIENT
  Age: 85 Year
  Sex: Female

DRUGS (2)
  1. PAROXETINE HCL [Suspect]
     Indication: DEPRESSION
     Dosage: 10 MG / PER DAY / ORAL
     Route: 048
     Dates: start: 20070719, end: 20070727
  2. OLANZAPINE [Concomitant]

REACTIONS (11)
  - ACTIVATION SYNDROME [None]
  - AKATHISIA [None]
  - ANXIETY [None]
  - COGNITIVE DISORDER [None]
  - CONFUSIONAL STATE [None]
  - HALLUCINATION, VISUAL [None]
  - HYPERSOMNIA [None]
  - INSOMNIA [None]
  - IRRITABILITY [None]
  - SELF INJURIOUS BEHAVIOUR [None]
  - SKIN LACERATION [None]
